FAERS Safety Report 13655368 (Version 8)
Quarter: 2018Q4

REPORT INFORMATION
  Report Type: Spontaneous
  Country: IT (occurrence: IT)
  Receive Date: 20170615
  Receipt Date: 20181226
  Transmission Date: 20190204
  Serious: Yes (Other)
  Sender: FDA-Public Use
  Company Number: IT-ACCORD-052517

PATIENT
  Age: 10 Year
  Sex: Male

DRUGS (2)
  1. OXYBUTYNIN/OXYBUTYNIN HYDROCHLORIDE [Suspect]
     Active Substance: OXYBUTYNIN
     Indication: ENURESIS
     Dosage: 1 DF, ONCE DAILY (QD)
     Route: 048
  2. LEVETIRACETAM. [Suspect]
     Active Substance: LEVETIRACETAM
     Indication: EPILEPSY
     Dosage: DOSE: 1 DOSAGE FORM DAILY?1 DOSAGE FORM, ONCE DAILY (QD)
     Route: 048
     Dates: start: 20121117

REACTIONS (2)
  - Abnormal behaviour [Recovering/Resolving]
  - Sleep disorder [Recovering/Resolving]

NARRATIVE: CASE EVENT DATE: 20170522
